FAERS Safety Report 23492174 (Version 2)
Quarter: 2025Q2

REPORT INFORMATION
  Report Type: Spontaneous
  Country: ES (occurrence: ES)
  Receive Date: 20240207
  Receipt Date: 20250619
  Transmission Date: 20250716
  Serious: Yes (Hospitalization, Other)
  Sender: AUROBINDO
  Company Number: ES-MLMSERVICE-20240122-4782033-1

PATIENT
  Age: 6 Year
  Sex: Male

DRUGS (3)
  1. MYCOPHENOLIC ACID [Suspect]
     Active Substance: MYCOPHENOLIC ACID
     Indication: Immunosuppressant drug therapy
     Dosage: 200 MILLIGRAM, TWO TIMES A DAY
     Route: 065
  2. AZATHIOPRINE [Suspect]
     Active Substance: AZATHIOPRINE
     Indication: Immunosuppressant drug therapy
     Route: 065
  3. TACROLIMUS [Suspect]
     Active Substance: TACROLIMUS
     Indication: Immunosuppressant drug therapy
     Dosage: 1 MILLIGRAM, TWO TIMES A DAY
     Route: 065

REACTIONS (2)
  - Gastroenteritis sapovirus [Recovered/Resolved]
  - Immunosuppressant drug level increased [Unknown]
